FAERS Safety Report 23830387 (Version 1)
Quarter: 2024Q2

REPORT INFORMATION
  Report Type: Spontaneous
  Country: US (occurrence: None)
  Receive Date: 20240506
  Receipt Date: 20240506
  Transmission Date: 20240715
  Serious: Yes (Other)
  Sender: FDA-Public Use
  Company Number: None

PATIENT
  Age: 68 Year
  Sex: Male
  Weight: 63.5 kg

DRUGS (1)
  1. RADICAVA ORS [Suspect]
     Active Substance: EDARAVONE
     Dosage: OTHER STRENGTH : 105MG/5ML;?

REACTIONS (1)
  - Dyspnoea [None]
